FAERS Safety Report 7395118-8 (Version None)
Quarter: 2011Q2

REPORT INFORMATION
  Report Type: 
  Country: None (occurrence: None)
  Receive Date: 20110405
  Receipt Date: 20110326
  Transmission Date: 20111010
  Serious: Yes (Other)
  Sender: FDA-Public Use
  Company Number: US-BRISTOL-MYERS SQUIBB COMPANY-15629918

PATIENT
  Age: 45 Year
  Sex: Male

DRUGS (8)
  1. LAMIVUDINE [Suspect]
     Indication: ANTIRETROVIRAL THERAPY
     Dates: start: 19940101
  2. DIDANOSINE [Suspect]
     Indication: ANTIRETROVIRAL THERAPY
     Dates: start: 19980101
  3. SAQUINAVIR [Suspect]
     Indication: ANTIRETROVIRAL THERAPY
  4. VIREAD [Suspect]
     Indication: ANTIRETROVIRAL THERAPY
  5. TRIZIVIR [Suspect]
     Indication: ANTIRETROVIRAL THERAPY
  6. ZIDOVUDINE [Suspect]
     Indication: ANTIRETROVIRAL THERAPY
     Dates: start: 19940101
  7. STAVUDINE [Suspect]
     Indication: ANTIRETROVIRAL THERAPY
  8. NELFINAVIR [Suspect]
     Indication: ANTIRETROVIRAL THERAPY
     Dates: start: 19990101

REACTIONS (4)
  - NODULAR REGENERATIVE HYPERPLASIA [None]
  - PORTAL HYPERTENSION [None]
  - LIVER INJURY [None]
  - HEPATIC FIBROSIS [None]
